FAERS Safety Report 11603004 (Version 1)
Quarter: 2015Q4

REPORT INFORMATION
  Report Type: Spontaneous
  Country: US (occurrence: None)
  Receive Date: 20151005
  Receipt Date: 20151005
  Transmission Date: 20160304
  Serious: Yes (Death)
  Sender: FDA-Public Use
  Company Number: 54973 AE # 1644

PATIENT
  Sex: Male

DRUGS (2)
  1. HYLAND^S LEG CRAMPS TABLETS [Suspect]
     Active Substance: HOMEOPATHICS
     Indication: PYREXIA
  2. HYLAND^S LEG CRAMPS TABLETS [Suspect]
     Active Substance: HOMEOPATHICS
     Indication: MUSCLE SPASMS

REACTIONS (1)
  - Death [None]

NARRATIVE: CASE EVENT DATE: 201509
